FAERS Safety Report 7389138-7 (Version None)
Quarter: 2011Q1

REPORT INFORMATION
  Report Type: 
  Country: None (occurrence: None)
  Receive Date: 20110329
  Receipt Date: 20110329
  Transmission Date: 20110831
  Serious: No
  Sender: FDA-Public Use
  Company Number: None

PATIENT
  Age: 67 Year
  Sex: Female
  Weight: 62.5964 kg

DRUGS (1)
  1. DILTIAZEM HCL [Suspect]
     Indication: HYPERTENSION
     Dosage: GEL CAP 1/DAY
     Dates: start: 20101101, end: 20110302

REACTIONS (4)
  - CAPSULE PHYSICAL ISSUE [None]
  - NO THERAPEUTIC RESPONSE [None]
  - VOMITING [None]
  - PRODUCT SUBSTITUTION ISSUE [None]
